FAERS Safety Report 17162031 (Version 4)
Quarter: 2021Q1

REPORT INFORMATION
  Report Type: Other
  Country: US (occurrence: US)
  Receive Date: 20191217
  Receipt Date: 20210227
  Transmission Date: 20210419
  Serious: Yes (Hospitalization, Other)
  Sender: FDA-Public Use
  Company Number: US-ROCHE-2494357

PATIENT
  Age: 54 Year
  Sex: Female

DRUGS (3)
  1. OCREVUS [Suspect]
     Active Substance: OCRELIZUMAB
     Indication: MULTIPLE SCLEROSIS
     Dosage: DATE OF TREATMENTS: 22/MAY/2018, 01/NOV/2018, 22/APR/2019 ,03/JUN/2019, 28/JAN/2020, 25/JUL/2020, 28
     Route: 042
     Dates: start: 20180508
  2. OCREVUS [Suspect]
     Active Substance: OCRELIZUMAB
     Route: 042
  3. VITAMIN D3 [Concomitant]
     Active Substance: CHOLECALCIFEROL

REACTIONS (4)
  - Infection [Unknown]
  - Kidney infection [Not Recovered/Not Resolved]
  - Urinary tract infection [Recovered/Resolved]
  - Nephrolithiasis [Not Recovered/Not Resolved]

NARRATIVE: CASE EVENT DATE: 20190426
